FAERS Safety Report 15312090 (Version 1)
Quarter: 2018Q3

REPORT INFORMATION
  Report Type: Spontaneous
  Country: US (occurrence: US)
  Receive Date: 20180823
  Receipt Date: 20180823
  Transmission Date: 20181010
  Serious: Yes (Other)
  Sender: FDA-Public Use
  Company Number: US-ASTRAZENECA-2018SF04615

PATIENT
  Sex: Female
  Weight: 83.9 kg

DRUGS (1)
  1. SYMBICORT [Suspect]
     Active Substance: BUDESONIDE\FORMOTEROL FUMARATE DIHYDRATE
     Indication: LUNG DISORDER
     Dosage: 160/4.5 MCG, TWO PUFFS IN THE AM AND PM
     Route: 055

REACTIONS (9)
  - Immune system disorder [Not Recovered/Not Resolved]
  - Upper limb fracture [Recovered/Resolved]
  - Rash [Not Recovered/Not Resolved]
  - Rash pruritic [Unknown]
  - Allergy to metals [Not Recovered/Not Resolved]
  - Product use in unapproved indication [Unknown]
  - Fall [Unknown]
  - Rash erythematous [Unknown]
  - Off label use [Not Recovered/Not Resolved]
